FAERS Safety Report 20404464 (Version 1)
Quarter: 2022Q1

REPORT INFORMATION
  Report Type: Spontaneous
  Country: FR (occurrence: FR)
  Receive Date: 20220131
  Receipt Date: 20220131
  Transmission Date: 20220423
  Serious: Yes (Hospitalization)
  Sender: FDA-Public Use
  Company Number: FR-AFSSAPS-NY20215609

PATIENT
  Age: 73 Year
  Sex: Male
  Weight: 76.3 kg

DRUGS (11)
  1. PAROXETINE [Suspect]
     Active Substance: PAROXETINE
     Indication: Depression
     Dosage: UNK
     Route: 048
  2. ESOMEPRAZOLE [Suspect]
     Active Substance: ESOMEPRAZOLE
     Indication: Gastrooesophageal reflux disease
     Dosage: 20 MILLIGRAM, DAILY
     Route: 048
     Dates: start: 202107
  3. INDAPAMIDE\PERINDOPRIL [Suspect]
     Active Substance: INDAPAMIDE\PERINDOPRIL
     Indication: Hypertension
     Dosage: 1 DOSAGE FORM, DAILY
     Route: 048
  4. FELODIPINE\METOPROLOL SUCCINATE [Suspect]
     Active Substance: FELODIPINE\METOPROLOL SUCCINATE
     Indication: Hypertension
     Dosage: 2 DOSAGE FORM, DAILY
     Route: 048
  5. ZOPICLONE [Concomitant]
     Active Substance: ZOPICLONE
     Indication: Insomnia
     Dosage: 7.5 MILLIGRAM, DAILY
     Route: 048
  6. GAVISCON [Concomitant]
     Active Substance: ALUMINUM HYDROXIDE\MAGNESIUM CARBONATE
     Indication: Gastrooesophageal reflux disease
     Dosage: 3 DOSAGE FORM, DAILY
     Route: 048
  7. BROMAZEPAM [Concomitant]
     Active Substance: BROMAZEPAM
     Indication: Anxiety
     Dosage: 1.5 MILLIGRAM, DAILY
     Route: 048
  8. PRAVASTATIN SODIUM [Concomitant]
     Active Substance: PRAVASTATIN SODIUM
     Indication: Dyslipidaemia
     Dosage: 20 MILLIGRAM, DAILY
     Route: 065
  9. KIPOS 100 000 UI, capsule molle [Concomitant]
     Indication: Osteoporosis prophylaxis
     Dosage: 1 DOSAGE FORM, 2/WEEK
     Route: 048
  10. VENTOLINE 1,25 mg/2,5 ml, solution pour inhalation par nebuliseur e... [Concomitant]
     Indication: Chronic obstructive pulmonary disease
     Dosage: 2 DOSAGE FORM, DAILY
     Route: 055
  11. ULTIBRO BREEZHALER 85 microgrammes/43 microgrammes, poudre pour inh... [Concomitant]
     Indication: Chronic obstructive pulmonary disease
     Dosage: 18 DOSAGE FORM, DAILY
     Route: 055

REACTIONS (1)
  - Hyponatraemia [Recovering/Resolving]

NARRATIVE: CASE EVENT DATE: 20211218
